FAERS Safety Report 8762388 (Version 1)
Quarter: 2012Q4

REPORT INFORMATION
  Report Type: 
  Country: US (occurrence: US)
  Receive Date: 20120829
  Receipt Date: 20120829
  Transmission Date: 20130627
  Serious: No
  Sender: FDA-Public Use
  Company Number: US-PFIZER INC-2012211872

PATIENT
  Age: 51 Year
  Sex: Female
  Weight: 78.01 kg

DRUGS (6)
  1. CHANTIX [Suspect]
     Indication: SMOKING CESSATION THERAPY
     Dosage: 0.5 mg, 1x/day
     Route: 048
     Dates: start: 2009
  2. CHANTIX [Suspect]
     Dosage: UNK
     Route: 048
  3. LORTAB [Concomitant]
     Indication: BACK PAIN
     Dosage: 10/500 mg, 3x/day
  4. SOMA [Concomitant]
     Indication: BACK PAIN
     Dosage: 350 mg, UNK
  5. AMBIEN [Concomitant]
     Dosage: 10 mg, UNK
  6. CLONAZEPAM [Concomitant]
     Indication: ANXIETY
     Dosage: UNK, as needed

REACTIONS (2)
  - Stress [Not Recovered/Not Resolved]
  - Abnormal dreams [Not Recovered/Not Resolved]
